FAERS Safety Report 8935284 (Version 2)
Quarter: 2014Q2

REPORT INFORMATION
  Report Type: Spontaneous
  Country: US (occurrence: US)
  Receive Date: 20121129
  Receipt Date: 20140603
  Transmission Date: 20141212
  Serious: Yes (Hospitalization)
  Sender: FDA-Public Use
  Company Number: US-GLAXOSMITHKLINE-A0781676A

PATIENT
  Age: 64 Year
  Sex: Male
  Weight: 135 kg

DRUGS (10)
  1. AVANDIA [Suspect]
     Indication: DIABETES MELLITUS
     Dosage: 8MG PER DAY
     Route: 048
     Dates: start: 200312, end: 2007
  2. TOPROL XL [Concomitant]
  3. LEXAPRO [Concomitant]
  4. ALEVE [Concomitant]
  5. GLUCOVANCE [Concomitant]
  6. LIPITOR [Concomitant]
  7. LASIX [Concomitant]
  8. KDUR [Concomitant]
  9. LISINOPRIL [Concomitant]
  10. ALDACTONE [Concomitant]

REACTIONS (8)
  - Myocardial ischaemia [Unknown]
  - Myocardial infarction [Unknown]
  - Pulmonary hypertension [Unknown]
  - Cardiac failure congestive [Unknown]
  - Blindness [Unknown]
  - Ischaemic cardiomyopathy [Unknown]
  - Coronary artery disease [Unknown]
  - Pleural effusion [Unknown]
